FAERS Safety Report 10899113 (Version 1)
Quarter: 2015Q1

REPORT INFORMATION
  Report Type: Spontaneous
  Country: FR (occurrence: FR)
  Receive Date: 20150309
  Receipt Date: 20150309
  Transmission Date: 20150721
  Serious: Yes (Death)
  Sender: FDA-Public Use
  Company Number: FR-ASTELLAS-2015US007287

PATIENT
  Sex: Female

DRUGS (4)
  1. TRIFLUCAN [Suspect]
     Active Substance: FLUCONAZOLE
     Indication: PERITONITIS
  2. MYCAMINE [Suspect]
     Active Substance: MICAFUNGIN SODIUM
     Indication: CANDIDA INFECTION
     Route: 042
     Dates: start: 20141023, end: 20141027
  3. TRIFLUCAN [Suspect]
     Active Substance: FLUCONAZOLE
     Indication: CANDIDA INFECTION
     Route: 048
     Dates: start: 20141023, end: 20141027
  4. MYCAMINE [Suspect]
     Active Substance: MICAFUNGIN SODIUM
     Indication: PERITONITIS

REACTIONS (2)
  - Multi-organ failure [Fatal]
  - Drug ineffective [Fatal]

NARRATIVE: CASE EVENT DATE: 20141023
